FAERS Safety Report 9816074 (Version 1)
Quarter: 2014Q1

REPORT INFORMATION
  Report Type: Spontaneous
  Country: BR (occurrence: BR)
  Receive Date: 20140114
  Receipt Date: 20140114
  Transmission Date: 20141002
  Serious: Yes (Other)
  Sender: FDA-Public Use
  Company Number: PHHY2014BR002974

PATIENT
  Age: 84 Year
  Sex: Female

DRUGS (1)
  1. ONBREZ [Suspect]
     Indication: CHRONIC OBSTRUCTIVE PULMONARY DISEASE
     Dosage: 1 DF, QD, APPROXIMATEL 20 DAY AGO
     Route: 055
     Dates: end: 20140109

REACTIONS (1)
  - Mucosal hyperaemia [Not Recovered/Not Resolved]
